FAERS Safety Report 17009291 (Version 1)
Quarter: 2019Q4

REPORT INFORMATION
  Report Type: Report from Study
  Country: CA (occurrence: CA)
  Receive Date: 20191108
  Receipt Date: 20191108
  Transmission Date: 20200122
  Serious: Yes (Other)
  Sender: FDA-Public Use
  Company Number: CA-TEVA-2019-CA-1132337

PATIENT
  Age: 24 Year
  Sex: Male
  Weight: 73 kg

DRUGS (2)
  1. CLINDAMYCIN HYDROCHLORIDE. [Suspect]
     Active Substance: CLINDAMYCIN HYDROCHLORIDE
     Indication: PHARYNGITIS
     Route: 048
  2. REMICADE [Suspect]
     Active Substance: INFLIXIMAB
     Indication: CROHN^S DISEASE
     Route: 042

REACTIONS (4)
  - Infectious mononucleosis [Recovering/Resolving]
  - Product use issue [Recovering/Resolving]
  - Hypersensitivity [Recovering/Resolving]
  - Off label use [Recovering/Resolving]
